FAERS Safety Report 13180990 (Version 1)
Quarter: 2017Q1

REPORT INFORMATION
  Report Type: Spontaneous
  Country: US (occurrence: US)
  Receive Date: 20170202
  Receipt Date: 20170202
  Transmission Date: 20170428
  Serious: No
  Sender: FDA-Public Use
  Company Number: US-SMITH AND NEPHEW, INC-2015SMT00672

PATIENT
  Age: 63 Year
  Sex: Male
  Weight: 126.98 kg

DRUGS (9)
  1. POTASSIUM [Concomitant]
     Active Substance: POTASSIUM
     Dosage: 500 MG, 1X/DAY
  2. CLONIDINE. [Concomitant]
     Active Substance: CLONIDINE
     Dosage: UNK, 1X/DAY
  3. SIMVASTATIN. [Concomitant]
     Active Substance: SIMVASTATIN
     Dosage: UNK, 1X/DAY
  4. REGRANEX [Suspect]
     Active Substance: BECAPLERMIN
     Indication: DIABETIC ULCER
     Dosage: UNK UNK, 2X/DAY
     Route: 061
     Dates: start: 201510, end: 2015
  5. LANTUS [Concomitant]
     Active Substance: INSULIN GLARGINE
     Dosage: 80 U, 2X/DAY
  6. REGRANEX [Suspect]
     Active Substance: BECAPLERMIN
     Dosage: UNK UNK, 1X/DAY
     Route: 061
     Dates: start: 2015
  7. LOSARTAN. [Concomitant]
     Active Substance: LOSARTAN
     Dosage: UNK, 1X/DAY
  8. GABAPENTIN. [Concomitant]
     Active Substance: GABAPENTIN
     Dosage: 800 MG, 2X/DAY
  9. METFORMIN [Concomitant]
     Active Substance: METFORMIN HYDROCHLORIDE
     Dosage: 500 MG, 2X/DAY

REACTIONS (3)
  - Application site paraesthesia [Recovering/Resolving]
  - Application site irritation [Recovering/Resolving]
  - Inappropriate schedule of drug administration [Recovered/Resolved]

NARRATIVE: CASE EVENT DATE: 201510
